FAERS Safety Report 6055685-3 (Version None)
Quarter: 2009Q1

REPORT INFORMATION
  Report Type: 
  Country: None (occurrence: None)
  Receive Date: 20090128
  Receipt Date: 20090116
  Transmission Date: 20090719
  Serious: Yes (Death, Hospitalization)
  Sender: FDA-Public Use
  Company Number: BE-WYE-H07092308

PATIENT
  Age: 50 Year
  Sex: Female

DRUGS (6)
  1. PANTOZOL [Suspect]
     Indication: GASTRIC ULCER
     Route: 048
     Dates: start: 20081010, end: 20081119
  2. LACTULOSE [Concomitant]
     Dosage: UNKNOWN
     Route: 065
     Dates: start: 20081010
  3. FOLIC ACID [Concomitant]
     Dosage: UNKNOWN
     Route: 065
     Dates: start: 20081010
  4. BEFACT [Concomitant]
     Dosage: UNKNOWN
     Route: 065
     Dates: start: 20081010
  5. LASIX [Concomitant]
     Dosage: UNKNOWN
     Route: 065
     Dates: start: 20081010
  6. ALDACTONE [Concomitant]
     Dosage: UNKNOWN
     Route: 065
     Dates: start: 20081010

REACTIONS (7)
  - ABSCESS INTESTINAL [None]
  - DIVERTICULITIS [None]
  - INFECTION [None]
  - MULTI-ORGAN FAILURE [None]
  - PERITONEAL INFECTION [None]
  - SEPSIS [None]
  - TOXIC EPIDERMAL NECROLYSIS [None]
